FAERS Safety Report 7754583-4 (Version None)
Quarter: 2011Q3

REPORT INFORMATION
  Report Type: 
  Country: None (occurrence: None)
  Receive Date: 20110915
  Receipt Date: 20110909
  Transmission Date: 20111222
  Serious: Yes (Other)
  Sender: FDA-Public Use
  Company Number: JP-B.I. PHARMACEUTICALS,INC./RIDGEFIELD-2011-BP-19057NB

PATIENT
  Age: 83 Year
  Sex: Male

DRUGS (9)
  1. NOVORAPID [Concomitant]
     Route: 065
  2. METFORMIN HCL [Concomitant]
     Route: 065
  3. CANDESARTAN CILEXETIL [Concomitant]
     Route: 048
  4. PRADAXA [Suspect]
     Indication: ATRIAL FIBRILLATION
     Dosage: 220 MG
     Route: 048
     Dates: start: 20110501
  5. GLUTAMEAL [Concomitant]
     Route: 065
  6. LANSOPRAZOLE [Concomitant]
     Route: 048
  7. GLUCOBAY [Concomitant]
     Route: 065
  8. INNOLET 30R [Concomitant]
     Route: 065
  9. ASPIRIN [Concomitant]
     Route: 048

REACTIONS (1)
  - CEREBRAL INFARCTION [None]
